FAERS Safety Report 5034645-5 (Version None)
Quarter: 2006Q2

REPORT INFORMATION
  Report Type: 
  Country: None (occurrence: None)
  Receive Date: 20060621
  Receipt Date: 20060608
  Transmission Date: 20061013
  Serious: Yes (Death, Hospitalization)
  Sender: FDA-Public Use
  Company Number: 104266

PATIENT
  Age: 66 Year
  Sex: Female

DRUGS (7)
  1. MABTHERA             (RITUXIMAB) [Suspect]
     Indication: B-CELL LYMPHOMA
     Dosage: 375 MG/M2, SINGLE, INTRAVENOUS
     Route: 042
     Dates: start: 20020205, end: 20020205
  2. LORAZEPAM [Concomitant]
  3. CITALOPRAM [Concomitant]
  4. CARMUSTINE [Concomitant]
  5. ETOPOSIDE [Concomitant]
  6. CYTARABINE [Concomitant]
  7. MELPHALAN [Concomitant]

REACTIONS (6)
  - HEPATIC FAILURE [None]
  - HEPATITIS ACUTE [None]
  - HEPATITIS CHOLESTATIC [None]
  - HEPATOTOXICITY [None]
  - LUNG INFECTION PSEUDOMONAL [None]
  - PSEUDOMONAL SEPSIS [None]
